FAERS Safety Report 6946255-0 (Version None)
Quarter: 2010Q3

REPORT INFORMATION
  Report Type: 
  Country: None (occurrence: None)
  Receive Date: 20100824
  Receipt Date: 20100811
  Transmission Date: 20110219
  Serious: Yes (Hospitalization)
  Sender: FDA-Public Use
  Company Number: 2010MA001648

PATIENT
  Age: 62 Year
  Sex: Female

DRUGS (5)
  1. METFORMIN HYDROCHLORIDE [Suspect]
  2. DEXTROSE 5% [Suspect]
     Dosage: IV
     Route: 042
  3. ENALAPRIL MALEATE [Concomitant]
  4. ATORVASTATIN [Concomitant]
  5. GLICLAZIDE [Concomitant]

REACTIONS (17)
  - ABDOMINAL PAIN [None]
  - BLOOD PRESSURE DIASTOLIC DECREASED [None]
  - BODY TEMPERATURE DECREASED [None]
  - CONTINUOUS HAEMODIAFILTRATION [None]
  - DIALYSIS [None]
  - DIARRHOEA [None]
  - HAEMODIALYSIS [None]
  - HYPOGLYCAEMIA [None]
  - HYPOPHAGIA [None]
  - LACTIC ACIDOSIS [None]
  - MUCOSAL DRYNESS [None]
  - NAUSEA [None]
  - PALLOR [None]
  - RENAL FAILURE ACUTE [None]
  - RESPIRATORY RATE INCREASED [None]
  - THERAPEUTIC AGENT TOXICITY [None]
  - VOMITING [None]
